FAERS Safety Report 4772729-7 (Version None)
Quarter: 2005Q3

REPORT INFORMATION
  Report Type: 
  Country: None (occurrence: None)
  Receive Date: 20050919
  Receipt Date: 20050913
  Transmission Date: 20060218
  Serious: Yes (Hospitalization)
  Sender: FDA-Public Use
  Company Number: GB-SANOFI-SYNTHELABO-A01200506272

PATIENT
  Age: 65 Year

DRUGS (14)
  1. OXALIPLATIN [Suspect]
     Route: 042
     Dates: start: 20050531
  2. ONDANSETRON [Suspect]
     Route: 040
     Dates: start: 20050531
  3. ONDANSETRON [Suspect]
     Route: 048
  4. DEXAMETHASONE [Suspect]
     Route: 040
     Dates: start: 20050531
  5. DEXAMETHASONE [Suspect]
     Route: 048
  6. FLUOROURACIL [Suspect]
     Dosage: 700 MG THEN 4300 MG
     Route: 042
     Dates: start: 20050531
  7. FLUOROURACIL [Suspect]
  8. FLUOROURACIL [Suspect]
  9. DOMPERIDONE [Suspect]
     Route: 048
  10. CALCIUM LEVOFOLINATE [Suspect]
     Route: 042
  11. WARFARIN [Concomitant]
     Indication: PROPHYLAXIS
     Route: 048
  12. OMEPRAZOLE [Concomitant]
     Indication: PROPHYLAXIS AGAINST GASTROINTESTINAL ULCER
     Dosage: 20 MG MANE
     Route: 048
  13. SLOW-K [Concomitant]
     Indication: BLOOD POTASSIUM DECREASED
     Dosage: TT OD
     Route: 048
  14. BENDROFLUMETHIAZIDE [Concomitant]
     Indication: HYPERTENSION
     Route: 065

REACTIONS (1)
  - CHOKING SENSATION [None]
